FAERS Safety Report 8728294 (Version 2)
Quarter: 2012Q4

REPORT INFORMATION
  Report Type: 
  Country: US (occurrence: US)
  Receive Date: 20120817
  Receipt Date: 20121119
  Transmission Date: 20130627
  Serious: Yes (Life-Threatening, Hospitalization)
  Sender: FDA-Public Use
  Company Number: US-BAYER-2012-081965

PATIENT
  Sex: Female
  Weight: 50 kg

DRUGS (11)
  1. YAZ [Suspect]
     Indication: ACNE
     Dosage: UNK
     Dates: start: 2008, end: 2010
  2. YAZ [Suspect]
     Indication: MENSTRUAL CYCLE MANAGEMENT
  3. YASMIN [Suspect]
     Indication: ACNE
     Dosage: UNK
     Dates: start: 2008, end: 2010
  4. YASMIN [Suspect]
     Indication: MENSTRUAL CYCLE MANAGEMENT
  5. YASMIN [Suspect]
     Indication: MENSTRUAL CYCLE MANAGEMENT
  6. OCELLA [Suspect]
     Indication: ACNE
     Dosage: UNK
     Dates: start: 2008, end: 2010
  7. OCELLA [Suspect]
     Indication: MENSTRUAL CYCLE MANAGEMENT
  8. LISINOPRIL [Concomitant]
     Indication: HYPERTENSION
     Dosage: 40 mg, daily
  9. CALCIUM W/VITAMIN D NOS [Concomitant]
     Dosage: 500 mg, QD
  10. FLUTICASONE [Concomitant]
     Dosage: 1 spray daily
     Route: 045
  11. MULTIVITAMIN [Concomitant]
     Dosage: 1 daily

REACTIONS (7)
  - Gallbladder disorder [None]
  - Biliary dyskinesia [None]
  - Hypertensive crisis [None]
  - Blood pressure immeasurable [None]
  - Pain [None]
  - Injury [None]
  - Pain [None]
